FAERS Safety Report 20878164 (Version 1)
Quarter: 2022Q2

REPORT INFORMATION
  Report Type: Spontaneous
  Country: TR (occurrence: TR)
  Receive Date: 20220526
  Receipt Date: 20220526
  Transmission Date: 20220721
  Serious: Yes (Other)
  Sender: FDA-Public Use
  Company Number: TR-NOVARTISPH-NVSC2022TR119410

PATIENT
  Age: 21 Year
  Sex: Female

DRUGS (2)
  1. ENALAPRIL [Suspect]
     Active Substance: ENALAPRIL
     Indication: Hypertension
     Dosage: 15 MG, BID (MORNING AND EVENING)
     Route: 065
  2. ENALAPRIL [Suspect]
     Active Substance: ENALAPRIL
     Indication: Hypertension
     Dosage: 15 MG, BID (MORNING AND EVENING)
     Route: 065

REACTIONS (3)
  - Blood pressure increased [Unknown]
  - Therapeutic response unexpected [Unknown]
  - Product availability issue [Unknown]
